FAERS Safety Report 17879606 (Version 1)
Quarter: 2020Q2

REPORT INFORMATION
  Report Type: Spontaneous
  Country: US (occurrence: US)
  Receive Date: 20200610
  Receipt Date: 20200610
  Transmission Date: 20200714
  Serious: No
  Sender: FDA-Public Use
  Company Number: US-ADVANZ PHARMA-202005005609

PATIENT

DRUGS (1)
  1. HYDROXYCHLOROQUINE [Suspect]
     Active Substance: HYDROXYCHLOROQUINE
     Dosage: EXTEMPORANEOUSLY PREPARED ORAL SUSPENSION
     Route: 048

REACTIONS (1)
  - Product selection error [Unknown]
